FAERS Safety Report 13257496 (Version 4)
Quarter: 2017Q3

REPORT INFORMATION
  Report Type: Spontaneous
  Country: US (occurrence: US)
  Receive Date: 20170221
  Receipt Date: 20170814
  Transmission Date: 20171127
  Serious: Yes (Other)
  Sender: FDA-Public Use
  Company Number: US-PFIZER INC-2017068164

PATIENT
  Age: 74 Year
  Sex: Female
  Weight: 112.4 kg

DRUGS (22)
  1. FASLODEX [Suspect]
     Active Substance: FULVESTRANT
     Indication: BREAST CANCER METASTATIC
     Dosage: 500 MG, CYCLIC (GIVEN 1 AND 15 AND THEN EVERY 28 DAYS)
     Route: 030
     Dates: start: 20160715
  2. GLIMEPIRIDE. [Concomitant]
     Active Substance: GLIMEPIRIDE
     Dosage: 2 MG, 2X/DAY
     Route: 048
  3. NOVOLOG [Concomitant]
     Active Substance: INSULIN ASPART
     Dosage: 20 IU, 2X/DAY
     Route: 058
  4. NOVOLOG [Concomitant]
     Active Substance: INSULIN ASPART
     Dosage: UNK UNK, 2X/DAY (TAKE INSULIN TWICE A DAY NOVOLOG 100 AND 20 MG)
  5. LETROZOLE. [Concomitant]
     Active Substance: LETROZOLE
     Dosage: UNK
     Dates: start: 20141219, end: 20160715
  6. FULVESTRANT. [Concomitant]
     Active Substance: FULVESTRANT
     Dosage: UNK
     Dates: start: 20160727
  7. FASLODEX [Suspect]
     Active Substance: FULVESTRANT
     Dosage: 125 MG PER DAY X3 WEEKS WITH 1 WEEK REST ON AN EVERY 28 DAY CYCLE
  8. SYNTHROID [Concomitant]
     Active Substance: LEVOTHYROXINE SODIUM
     Dosage: 150 UG, 1X/DAY (0.15 MG)
     Route: 048
  9. OXYCODONE [Concomitant]
     Active Substance: OXYCODONE
     Indication: PAIN
     Dosage: 5 MG, AS NEEDED (EVERY 4 HOURS ) (Q4HR)
     Route: 048
  10. FULVESTRANT. [Concomitant]
     Active Substance: FULVESTRANT
     Dosage: UNK, MONTHLY (A SHOT, ONCE A MONTH)
  11. IBRANCE [Suspect]
     Active Substance: PALBOCICLIB
     Dosage: 100 MG, DAILY
     Route: 048
     Dates: start: 20160715
  12. XGEVA [Suspect]
     Active Substance: DENOSUMAB
     Indication: BREAST CANCER METASTATIC
     Dosage: UNK
     Dates: start: 20150109
  13. FASLODEX [Suspect]
     Active Substance: FULVESTRANT
     Dosage: 100 MG, ONCE A DAY (QD)
  14. LEVOTHYROXINE. [Concomitant]
     Active Substance: LEVOTHYROXINE
  15. ASPIRIN. [Concomitant]
     Active Substance: ASPIRIN
     Dosage: 81 MG, 1X/DAY (QDAY)
     Route: 048
  16. METFORMIN [Concomitant]
     Active Substance: METFORMIN HYDROCHLORIDE
     Dosage: 500 MG, TWICE A DAY
  17. IBRANCE [Suspect]
     Active Substance: PALBOCICLIB
     Indication: BREAST CANCER STAGE IV
     Dosage: 100 MG, CYCLIC (ONCE A DAY FOR 21 DAYS, THEN OFF FOR 7 DAYS)
     Dates: start: 20160715
  18. LIPITOR [Concomitant]
     Active Substance: ATORVASTATIN CALCIUM
     Dosage: 40 MG, DAILY (QHS)
     Route: 048
  19. CARVEDILOL. [Concomitant]
     Active Substance: CARVEDILOL
     Dosage: 6.25 MG, 2X/DAY
     Route: 048
  20. CLOPIDOGREL [Concomitant]
     Active Substance: CLOPIDOGREL BISULFATE
     Dosage: 75 MG, 1X/DAY [QDAY]
     Route: 048
  21. ATORVASTATIN [Concomitant]
     Active Substance: ATORVASTATIN
     Dosage: 40 MG, DAILY
  22. LOSARTAN. [Concomitant]
     Active Substance: LOSARTAN
     Dosage: 100 MG, ONCE A DAY
     Route: 048

REACTIONS (8)
  - Neutropenia [Unknown]
  - Increased appetite [Unknown]
  - Irritability [Unknown]
  - Fatigue [Unknown]
  - Disturbance in attention [Unknown]
  - Blood disorder [Unknown]
  - Gastrointestinal infection [Unknown]
  - Weight increased [Unknown]
